FAERS Safety Report 15371376 (Version 1)
Quarter: 2018Q3

REPORT INFORMATION
  Report Type: Spontaneous
  Country: FR (occurrence: FR)
  Receive Date: 20180911
  Receipt Date: 20180911
  Transmission Date: 20181010
  Serious: Yes (Life-Threatening, Other)
  Sender: FDA-Public Use
  Company Number: FR-SA-2018SA244738

PATIENT
  Age: 89 Year
  Sex: Female

DRUGS (14)
  1. OXYCONTIN [Concomitant]
     Active Substance: OXYCODONE HYDROCHLORIDE
     Dosage: UNK, UNK
  2. CARDENSIEL [Concomitant]
     Active Substance: BISOPROLOL FUMARATE
     Dosage: 2.5 MG, UNK
  3. PREVISCAN [FLUINDIONE] [Concomitant]
     Active Substance: FLUINDIONE
     Dosage: UNK
     Dates: end: 20100427
  4. DIGOXIN. [Concomitant]
     Active Substance: DIGOXIN
     Dosage: UNK, UNK
  5. PREGABALIN. [Suspect]
     Active Substance: PREGABALIN
     Indication: NEURALGIA
     Dosage: 75 MG, 2X/DAY
     Route: 048
     Dates: start: 20100423, end: 20100426
  6. ALDACTONE?SALTUCIN [BUTIZIDE;SPIRONOLACTONE] [Concomitant]
  7. INEXIUM [ESOMEPRAZOLE MAGNESIUM] [Concomitant]
     Dosage: 40 MG, UNK
  8. IMOVANE [Concomitant]
     Active Substance: ZOPICLONE
     Dosage: UNK, UNK
  9. XYZAL [Suspect]
     Active Substance: LEVOCETIRIZINE DIHYDROCHLORIDE
     Dosage: 5 MG, 1X/DAY
     Route: 048
     Dates: start: 20100424, end: 20100426
  10. OXYNORM [Concomitant]
     Active Substance: OXYCODONE HYDROCHLORIDE
     Dosage: UNK UNK, UNK
  11. FUSIDIC ACID [Suspect]
     Active Substance: FUSIDIC ACID
     Indication: INFECTED SKIN ULCER
     Dosage: INCONNU
     Route: 048
     Dates: start: 20100413, end: 20100429
  12. TRIATEC [RAMIPRIL] [Concomitant]
     Dosage: 2.5 MG, UNK
  13. GAVISCON ADVANCE [SODIUM ALGINATE] [Concomitant]
     Dosage: UNK UNK, UNK
  14. LASILIX [FUROSEMIDE] [Concomitant]
     Dosage: 20 MG, UNK

REACTIONS (2)
  - Agranulocytosis [Recovered/Resolved]
  - Thrombocytopenia [Recovering/Resolving]

NARRATIVE: CASE EVENT DATE: 20100427
